FAERS Safety Report 8189218-2 (Version None)
Quarter: 2012Q1

REPORT INFORMATION
  Report Type: 
  Country: None (occurrence: None)
  Receive Date: 20120306
  Receipt Date: 20120306
  Transmission Date: 20120608
  Serious: No
  Sender: FDA-Public Use
  Company Number: None

PATIENT
  Sex: Female
  Weight: 107.7 kg

DRUGS (1)
  1. CISPLATIN [Suspect]
     Dosage: 100 MG

REACTIONS (2)
  - LYMPHOCYTE COUNT DECREASED [None]
  - TOXICITY TO VARIOUS AGENTS [None]
